FAERS Safety Report 9317495 (Version 1)
Quarter: 2013Q2

REPORT INFORMATION
  Report Type: Spontaneous
  Country: US (occurrence: US)
  Receive Date: 20130530
  Receipt Date: 20130530
  Transmission Date: 20140414
  Serious: No
  Sender: FDA-Public Use
  Company Number: US-NOVEN-12US005241

PATIENT
  Age: 10 Year
  Sex: Male

DRUGS (2)
  1. DAYTRANA [Suspect]
     Indication: ATTENTION DEFICIT/HYPERACTIVITY DISORDER
     Dosage: 2 X 10 MG QD
     Route: 062
     Dates: start: 201208
  2. DAYTRANA [Suspect]
     Dosage: 10 MG, QD
     Dates: start: 201108, end: 201208

REACTIONS (5)
  - Abnormal behaviour [Not Recovered/Not Resolved]
  - Decreased appetite [Not Recovered/Not Resolved]
  - Tic [Unknown]
  - Drug ineffective [Recovered/Resolved]
  - Wrong technique in drug usage process [Recovered/Resolved]
